FAERS Safety Report 7928349-6 (Version None)
Quarter: 2011Q4

REPORT INFORMATION
  Report Type: 
  Country: None (occurrence: None)
  Receive Date: 20111118
  Receipt Date: 20111019
  Transmission Date: 20120403
  Serious: Yes (Other)
  Sender: FDA-Public Use
  Company Number: GXKR2008GB06766

PATIENT
  Age: 12 Week
  Sex: Male

DRUGS (2)
  1. PROPULSID [Concomitant]
     Indication: GASTROOESOPHAGEAL REFLUX DISEASE
  2. OMEPRAZOLE [Suspect]
     Indication: GASTROOESOPHAGEAL REFLUX DISEASE
     Dosage: 0.7 MG/KG, QD

REACTIONS (3)
  - SYMPTOM MASKED [None]
  - PYLORIC STENOSIS [None]
  - VOMITING [None]
